FAERS Safety Report 5199726-4 (Version None)
Quarter: 2007Q1

REPORT INFORMATION
  Report Type: 
  Country: None (occurrence: None)
  Receive Date: 20070102
  Receipt Date: 20070102
  Transmission Date: 20070707
  Serious: Yes (Other)
  Sender: FDA-Public Use
  Company Number: None

PATIENT
  Age: 54 Year
  Sex: Female
  Weight: 102 kg

DRUGS (2)
  1. JANTOVEN [Suspect]
     Indication: PULMONARY EMBOLISM
     Dosage: DAILY PO
     Route: 048
     Dates: start: 20061211
  2. JANTOVEN [Suspect]
     Indication: PULMONARY EMBOLISM
     Dosage: DAILY PO
     Route: 048
     Dates: start: 20061214

REACTIONS (3)
  - GANGRENE [None]
  - SKIN DISCOLOURATION [None]
  - SKIN NECROSIS [None]
